FAERS Safety Report 5441471-1 (Version None)
Quarter: 2007Q3

REPORT INFORMATION
  Report Type: 
  Country: None (occurrence: None)
  Receive Date: 20070904
  Receipt Date: 20070829
  Transmission Date: 20080115
  Serious: Yes (Hospitalization)
  Sender: FDA-Public Use
  Company Number: FR-ELI_LILLY_AND_COMPANY-FR200708006319

PATIENT
  Age: 26 Year
  Sex: Male

DRUGS (5)
  1. ZYPREXA [Suspect]
     Indication: DELUSION
     Dosage: 40 MG, DAILY (1/D)
     Route: 048
     Dates: start: 20070624, end: 20070727
  2. DEPAKOTE [Concomitant]
     Indication: DELUSION
     Dosage: 500 MG, 2/D
     Route: 048
     Dates: start: 20070624, end: 20070727
  3. LEPONEX [Concomitant]
     Indication: DELUSION
     Dosage: 100 MG, 4/D
     Route: 048
     Dates: start: 20070704
  4. ATARAX [Concomitant]
     Dosage: UNK, UNKNOWN
     Route: 048
     Dates: end: 20070701
  5. CLONAZEPAM [Concomitant]
     Dosage: UNK, UNKNOWN
     Route: 065

REACTIONS (4)
  - ASPARTATE AMINOTRANSFERASE INCREASED [None]
  - BLOOD CREATINE PHOSPHOKINASE INCREASED [None]
  - BLOOD LACTATE DEHYDROGENASE INCREASED [None]
  - OVERDOSE [None]
